FAERS Safety Report 6621974-4 (Version None)
Quarter: 2010Q1

REPORT INFORMATION
  Report Type: 
  Country: None (occurrence: None)
  Receive Date: 20100303
  Receipt Date: 20100216
  Transmission Date: 20100710
  Serious: Yes (Other)
  Sender: FDA-Public Use
  Company Number: US-1180880

PATIENT
  Sex: Male

DRUGS (1)
  1. FLAREX [Suspect]
     Dosage: OPHTHALMIC
     Route: 047
     Dates: start: 20090919, end: 20091015

REACTIONS (11)
  - BLINDNESS UNILATERAL [None]
  - BURNING SENSATION [None]
  - EYE DISCHARGE [None]
  - EYE IRRITATION [None]
  - EYELID MARGIN CRUSTING [None]
  - FOREIGN BODY SENSATION IN EYES [None]
  - IMPAIRED DRIVING ABILITY [None]
  - PAIN [None]
  - RETINAL DETACHMENT [None]
  - RETINAL TEAR [None]
  - TREATMENT NONCOMPLIANCE [None]
